FAERS Safety Report 12088601 (Version 2)
Quarter: 2017Q2

REPORT INFORMATION
  Report Type: Report from Study
  Country: US (occurrence: US)
  Receive Date: 20160218
  Receipt Date: 20170508
  Transmission Date: 20170829
  Serious: No
  Sender: FDA-Public Use
  Company Number: PHEH2016US003768

PATIENT
  Age: 60 Year
  Sex: Female

DRUGS (1)
  1. COSENTYX [Suspect]
     Active Substance: SECUKINUMAB
     Indication: PRODUCT USED FOR UNKNOWN INDICATION
     Dosage: 300 MG, QW
     Route: 058

REACTIONS (2)
  - Pain [Unknown]
  - Upper-airway cough syndrome [Unknown]

NARRATIVE: CASE EVENT DATE: 20160211
